FAERS Safety Report 11662202 (Version 1)
Quarter: 2015Q4

REPORT INFORMATION
  Report Type: Spontaneous
  Country: US (occurrence: US)
  Receive Date: 20151026
  Receipt Date: 20151026
  Transmission Date: 20160304
  Serious: No
  Sender: FDA-Public Use
  Company Number: CHPA2015US012635

PATIENT
  Age: 67 Year
  Sex: Female

DRUGS (3)
  1. VOLTAREN [Suspect]
     Active Substance: DICLOFENAC SODIUM
     Indication: POLIOMYELITIS
  2. VOLTAREN [Suspect]
     Active Substance: DICLOFENAC SODIUM
     Indication: ARTHRITIS
     Dosage: DIME SIZE, QD TO BID
     Route: 061
     Dates: start: 201510
  3. VOLTAREN [Suspect]
     Active Substance: DICLOFENAC SODIUM
     Indication: BURSITIS

REACTIONS (4)
  - Wrong technique in product usage process [Unknown]
  - Product use issue [Unknown]
  - Drug administered at inappropriate site [Unknown]
  - Inappropriate schedule of drug administration [Unknown]

NARRATIVE: CASE EVENT DATE: 201510
